FAERS Safety Report 6056818-5 (Version None)
Quarter: 2009Q1

REPORT INFORMATION
  Report Type: 
  Country: None (occurrence: None)
  Receive Date: 20090126
  Receipt Date: 20090126
  Transmission Date: 20090719
  Serious: No
  Sender: FDA-Public Use
  Company Number: None

PATIENT
  Age: 6 Year
  Sex: Male
  Weight: 22.2263 kg

DRUGS (1)
  1. SINGULAIR [Suspect]
     Indication: ASTHMA
     Dosage: 5MG ONCE A DAY AT NIGHT PO
     Route: 048
     Dates: start: 20081204, end: 20090122

REACTIONS (2)
  - PERSONALITY CHANGE [None]
  - SUICIDAL IDEATION [None]
